FAERS Safety Report 14977819 (Version 2)
Quarter: 2018Q2

REPORT INFORMATION
  Report Type: Spontaneous
  Country: NL (occurrence: NL)
  Receive Date: 20180606
  Receipt Date: 20180614
  Transmission Date: 20180711
  Serious: Yes (Other)
  Sender: FDA-Public Use
  Company Number: NL-TEVA-2018-NL-902554

PATIENT
  Sex: Male

DRUGS (1)
  1. AMOXICILLINE TEVA [Suspect]
     Active Substance: AMOXICILLIN
     Indication: LARYNGITIS
     Route: 065

REACTIONS (2)
  - Rash erythematous [Recovered/Resolved]
  - Rash pruritic [Recovered/Resolved]
